FAERS Safety Report 17486314 (Version 1)
Quarter: 2020Q1

REPORT INFORMATION
  Report Type: Spontaneous
  Country: US (occurrence: US)
  Receive Date: 20200303
  Receipt Date: 20200303
  Transmission Date: 20200409
  Serious: No
  Sender: FDA-Public Use
  Company Number: US-GLAXOSMITHKLINE-US2020034851

PATIENT
  Sex: Female

DRUGS (3)
  1. ABREVA [Suspect]
     Active Substance: DOCOSANOL
     Dosage: UNK
  2. ABREVA [Suspect]
     Active Substance: DOCOSANOL
     Indication: ORAL HERPES
     Dosage: UNK
     Dates: start: 20200224
  3. ABREVA [Suspect]
     Active Substance: DOCOSANOL
     Dosage: UNK

REACTIONS (3)
  - Expired product administered [Unknown]
  - Wrong technique in product usage process [Unknown]
  - Drug ineffective [Unknown]
